FAERS Safety Report 18769015 (Version 1)
Quarter: 2021Q1

REPORT INFORMATION
  Report Type: Spontaneous
  Country: US (occurrence: US)
  Receive Date: 20210121
  Receipt Date: 20210121
  Transmission Date: 20210419
  Serious: No
  Sender: FDA-Public Use
  Company Number: US-PFIZER INC-2021042001

PATIENT
  Sex: Female

DRUGS (6)
  1. FELDENE [Suspect]
     Active Substance: PIROXICAM
  2. ASPIRIN [ACETYLSALICYLIC ACID] [Suspect]
     Active Substance: ASPIRIN
  3. MOTRIN [Suspect]
     Active Substance: IBUPROFEN
  4. MORPHINE SULFATE. [Suspect]
     Active Substance: MORPHINE SULFATE
  5. DARVON [Suspect]
     Active Substance: PROPOXYPHENE HYDROCHLORIDE
  6. NAPROXEN. [Suspect]
     Active Substance: NAPROXEN

REACTIONS (1)
  - Drug hypersensitivity [Unknown]
